FAERS Safety Report 21993240 (Version 1)
Quarter: 2023Q1

REPORT INFORMATION
  Report Type: Spontaneous
  Country: CA (occurrence: CA)
  Receive Date: 20230215
  Receipt Date: 20230215
  Transmission Date: 20230418
  Serious: Yes (Other)
  Sender: FDA-Public Use
  Company Number: CA-002147023-NVSC2023CA028940

PATIENT
  Sex: Male

DRUGS (1)
  1. OMALIZUMAB [Suspect]
     Active Substance: OMALIZUMAB
     Indication: Chronic spontaneous urticaria
     Dosage: 150 MG, QMO
     Route: 065
     Dates: start: 20220610

REACTIONS (4)
  - Angioedema [Unknown]
  - Pertussis [Unknown]
  - Rhinovirus infection [Unknown]
  - Urticaria [Unknown]
